FAERS Safety Report 10174486 (Version 1)
Quarter: 2014Q2

REPORT INFORMATION
  Report Type: Spontaneous
  Country: US (occurrence: None)
  Receive Date: 20140416
  Receipt Date: 20140416
  Transmission Date: 20141212
  Serious: Yes (Hospitalization)
  Sender: FDA-Public Use
  Company Number: 163-POMAL-13121242

PATIENT
  Age: 73 Year
  Sex: Female

DRUGS (16)
  1. POMALYST (POMALIDOMIDE) (2 MILLIGRAM, CAPSULES) [Suspect]
     Indication: PLASMA CELL MYELOMA
     Dosage: 2 MG, 1 IN 2 D, PO
     Route: 048
     Dates: start: 20131014
  2. VELCADE (BORTEZOMIB) (UNKNOWN) [Concomitant]
  3. ACYCLOVIR (ACICLOVIR) (UNKNOWN) [Concomitant]
  4. ALBUTEROL (SALBUTOMAL) (UNKNOWN) [Concomitant]
  5. TEKTURNA (ALISKIREN) (UNKNOWN) [Concomitant]
  6. AMLODIPINE (AMLODIPINE) (UNKNOWN) [Concomitant]
  7. CALCIUM (CALCIUM) (UNKNOWN) [Concomitant]
  8. VITAMIN D (ERGOCALCIFEROL) (UNKNOWN) [Concomitant]
  9. DAPSONE (DAPSONE) (UNKNOWN) [Concomitant]
  10. DEXAMETHASONE (DEXAMETHASONE) (UNKNOWN) [Concomitant]
  11. ESTRADIOL (ESTRADIOL) (UNKNOWN) [Concomitant]
  12. FLUCONAZOLE (FLUCONAZOLE) (UNKNOWN) [Concomitant]
  13. LOPERAMIDE (LOPERAMIDE) (UNKNOWN) [Concomitant]
  14. METOPROLOL (METOPROLOL) (UNKNOWN) [Concomitant]
  15. OMEPRAZOLE (OMEPRAZOLE) (UNKNOWN) [Concomitant]
  16. COMPAZINE (PROCHLORPERAZINE EDISYLATE) (UNKNOWN) [Concomitant]

REACTIONS (1)
  - Pneumonia [None]
